FAERS Safety Report 6147129-8 (Version None)
Quarter: 2009Q2

REPORT INFORMATION
  Report Type: 
  Country: None (occurrence: None)
  Receive Date: 20090403
  Receipt Date: 20090324
  Transmission Date: 20091009
  Serious: Yes (Hospitalization, Other)
  Sender: FDA-Public Use
  Company Number: 2009AP001099

PATIENT
  Age: 71 Year
  Sex: Male

DRUGS (3)
  1. CYCLOSPORINE [Suspect]
     Indication: IMMUNOSUPPRESSION
     Dosage: 6 MG/KG; QD;, 420 MG; BID;, 350 MG; BID;
  2. ANTI-THYMOCYTE GLOBULIN NOS [Concomitant]
  3. METHYLPREDNISOLONE 4MG TAB [Concomitant]

REACTIONS (4)
  - DEHYDRATION [None]
  - DIABETES MELLITUS [None]
  - DRUG LEVEL ABOVE THERAPEUTIC [None]
  - HYPOPHAGIA [None]
